FAERS Safety Report 19030242 (Version 1)
Quarter: 2021Q1

REPORT INFORMATION
  Report Type: Spontaneous
  Country: IL (occurrence: IL)
  Receive Date: 20210319
  Receipt Date: 20210319
  Transmission Date: 20210420
  Serious: Yes (Other)
  Sender: FDA-Public Use
  Company Number: IL-ROCHE-2787772

PATIENT
  Age: 67 Year
  Sex: Male

DRUGS (5)
  1. AVASTIN [Suspect]
     Active Substance: BEVACIZUMAB
     Indication: OLIGODENDROGLIOMA
     Dosage: 400 MG/16 ML IV?ON 09/SEP/2020 (AFTER 2 TREATMENTS) ? POSTPONEMENT OF ~ ONE WEEK DUE TO CORONA; LAST
     Route: 042
  2. CANNABIS OIL [Concomitant]
     Active Substance: CANNABIS SATIVA SEED OIL\HERBALS
     Dosage: 2?3 DROPS TWICE PER DAY (HELPS WITH SLEEP) ? AROUND BEDTIME
     Route: 060
  3. DISOTHIAZIDE [Concomitant]
     Active Substance: HYDROCHLOROTHIAZIDE
     Dosage: 0.5 X 1 PER DAY
     Route: 048
  4. LEVETIRACETAM. [Concomitant]
     Active Substance: LEVETIRACETAM
     Dosage: 1 X1 PER DAY
     Route: 048
  5. DEXAMETHASONE. [Concomitant]
     Active Substance: DEXAMETHASONE
     Route: 048

REACTIONS (5)
  - Seizure [Unknown]
  - Fatigue [Unknown]
  - Drug ineffective [Unknown]
  - Balance disorder [Unknown]
  - Coronavirus infection [Recovered/Resolved]
